FAERS Safety Report 17067343 (Version 1)
Quarter: 2019Q4

REPORT INFORMATION
  Report Type: Report from Study
  Country: US (occurrence: US)
  Receive Date: 20191122
  Receipt Date: 20191122
  Transmission Date: 20200122
  Serious: Yes (Other)
  Sender: FDA-Public Use
  Company Number: NVSC2019US040650

PATIENT
  Age: 24 Year
  Sex: Female

DRUGS (1)
  1. GLATOPA [Suspect]
     Active Substance: GLATIRAMER ACETATE
     Indication: MULTIPLE SCLEROSIS
     Dosage: 20 MG, QD, VIA GLATOPAJECT
     Route: 058
     Dates: start: 20190315

REACTIONS (3)
  - Device leakage [Unknown]
  - Multiple sclerosis [Unknown]
  - Product dose omission [Unknown]

NARRATIVE: CASE EVENT DATE: 20191109
